FAERS Safety Report 6203269-6 (Version None)
Quarter: 2009Q2

REPORT INFORMATION
  Report Type: 
  Country: None (occurrence: None)
  Receive Date: 20090522
  Receipt Date: 20090522
  Transmission Date: 20091009
  Serious: Yes (Hospitalization)
  Sender: FDA-Public Use
  Company Number: None

PATIENT
  Age: 72 Year
  Sex: Male
  Weight: 100 kg

DRUGS (2)
  1. BACLOFEN [Suspect]
     Dosage: 15 MG QID PO
     Route: 048
     Dates: start: 20090429
  2. GABAPENTIN [Suspect]
     Dosage: 300 MG QID PO
     Route: 048
     Dates: start: 20090429

REACTIONS (3)
  - HALLUCINATION [None]
  - MENTAL STATUS CHANGES [None]
  - MYOCLONUS [None]
